FAERS Safety Report 5974286-6 (Version None)
Quarter: 2008Q4

REPORT INFORMATION
  Report Type: 
  Country: None (occurrence: None)
  Receive Date: 20081201
  Receipt Date: 20081126
  Transmission Date: 20090506
  Serious: Yes (Life-Threatening, Hospitalization, Other)
  Sender: FDA-Public Use
  Company Number: DE-PFIZER INC-2008081794

PATIENT
  Sex: Female
  Weight: 82 kg

DRUGS (4)
  1. CHAMPIX [Suspect]
     Indication: DRUG WITHDRAWAL SYNDROME
     Route: 048
     Dates: start: 20080208, end: 20080601
  2. EZETIMIBE/SIMVASTATIN [Suspect]
     Indication: BLOOD CHOLESTEROL INCREASED
     Dosage: TEXT:10MG/40MG
     Route: 048
     Dates: start: 20070904
  3. BISOPROLOL FUMARATE [Concomitant]
     Route: 048
     Dates: start: 20040101
  4. ENALAPRIL MALEATE [Concomitant]
     Route: 048
     Dates: start: 20040101

REACTIONS (2)
  - ACUTE MYELOID LEUKAEMIA [None]
  - WEIGHT INCREASED [None]
